FAERS Safety Report 4272831-2 (Version None)
Quarter: 2004Q1

REPORT INFORMATION
  Report Type: 
  Country: None (occurrence: None)
  Receive Date: 20040114
  Receipt Date: 20040102
  Transmission Date: 20041129
  Serious: Yes (Hospitalization, Other)
  Sender: FDA-Public Use
  Company Number: 2003111629

PATIENT
  Age: 38 Year
  Sex: Female
  Weight: 113.3993 kg

DRUGS (3)
  1. NARDIL [Suspect]
     Indication: DEPRESSION
     Dosage: (DAILY), ORAL
     Route: 048
     Dates: start: 19940101
  2. LIOTHYRONINE SODIUM) (LIOTHYRONINE) [Concomitant]
  3. SPIRONOLACTONE [Concomitant]

REACTIONS (9)
  - APPENDICITIS [None]
  - BLOOD IMMUNOGLOBULIN G INCREASED [None]
  - BLOOD IMMUNOGLOBULIN M INCREASED [None]
  - DYSGEUSIA [None]
  - DYSPEPSIA [None]
  - FATIGUE [None]
  - PHARMACEUTICAL PRODUCT COMPLAINT [None]
  - WEST NILE VIRAL INFECTION [None]
  - WHITE BLOOD CELL COUNT INCREASED [None]
